FAERS Safety Report 8361517-0 (Version None)
Quarter: 2012Q2

REPORT INFORMATION
  Report Type: 
  Country: None (occurrence: None)
  Receive Date: 20120515
  Receipt Date: 20120503
  Transmission Date: 20120825
  Serious: Yes (Hospitalization)
  Sender: FDA-Public Use
  Company Number: US-ELI_LILLY_AND_COMPANY-US201205002041

PATIENT
  Age: 85 Year
  Sex: Female

DRUGS (2)
  1. INSULIN [Concomitant]
  2. ZYPREXA [Suspect]
     Dosage: UNK
     Dates: start: 20100101, end: 20110901

REACTIONS (2)
  - DYSPNOEA [None]
  - PSYCHOTIC DISORDER [None]
